FAERS Safety Report 12407007 (Version 2)
Quarter: 2016Q3

REPORT INFORMATION
  Report Type: Spontaneous
  Country: BR (occurrence: BR)
  Receive Date: 20160526
  Receipt Date: 20160701
  Transmission Date: 20161109
  Serious: No
  Sender: FDA-Public Use
  Company Number: BR-ROCHE-1764343

PATIENT
  Sex: Female
  Weight: 50 kg

DRUGS (6)
  1. ACTEMRA [Suspect]
     Active Substance: TOCILIZUMAB
     Indication: RHEUMATOID ARTHRITIS
     Dosage: 10 AMPOULES,  80 MG/4 ML
     Route: 042
     Dates: start: 2015
  2. HYDROCHLOROTHIAZIDE. [Concomitant]
     Active Substance: HYDROCHLOROTHIAZIDE
     Indication: HYPERTENSION
     Dosage: AS REQUIRED
     Route: 065
  3. CORTISONE [Suspect]
     Active Substance: CORTISONE\HYDROCORTISONE
     Indication: PRODUCT USED FOR UNKNOWN INDICATION
     Route: 065
  4. LOSARTAN. [Concomitant]
     Active Substance: LOSARTAN
     Indication: HYPERTENSION
     Dosage: AS REQUIRED
     Route: 065
  5. VITAMIN C [Concomitant]
     Active Substance: ASCORBIC ACID
     Indication: VITAMIN SUPPLEMENTATION
     Route: 065
  6. PREDNISONE. [Concomitant]
     Active Substance: PREDNISONE
     Indication: PAIN
     Route: 065

REACTIONS (2)
  - Abdominal pain [Recovered/Resolved]
  - Nausea [Recovered/Resolved]
